FAERS Safety Report 4684988-X (Version None)
Quarter: 2005Q2

REPORT INFORMATION
  Report Type: 
  Country: None (occurrence: None)
  Receive Date: 20050531
  Receipt Date: 20050307
  Transmission Date: 20051028
  Serious: No
  Sender: FDA-Public Use
  Company Number: WAES 0503USA00890

PATIENT
  Sex: Female

DRUGS (1)
  1. ZETIA [Suspect]
     Dosage: PO
     Route: 048

REACTIONS (8)
  - ABNORMAL FAECES [None]
  - ADVERSE EVENT [None]
  - BACK PAIN [None]
  - EATING DISORDER SYMPTOM [None]
  - FAECALOMA [None]
  - MYALGIA [None]
  - RECTAL HAEMORRHAGE [None]
  - SKIN DISCOLOURATION [None]
